FAERS Safety Report 5713113-9 (Version None)
Quarter: 2008Q2

REPORT INFORMATION
  Report Type: 
  Country: None (occurrence: None)
  Receive Date: 20080422
  Receipt Date: 20080411
  Transmission Date: 20081010
  Serious: Yes (Hospitalization)
  Sender: FDA-Public Use
  Company Number: JP-SANOFI-SYNTHELABO-F01200800153

PATIENT
  Sex: Female
  Weight: 51 kg

DRUGS (5)
  1. ULCERLMIN [Concomitant]
     Dosage: 3 G
     Route: 048
     Dates: start: 20060908
  2. LANSOPRAZOLE [Concomitant]
     Dosage: 15 MG
     Route: 048
     Dates: start: 20060905
  3. LIVALO [Concomitant]
     Indication: HYPERLIPIDAEMIA
     Dosage: 1 MG
     Route: 048
     Dates: start: 20060905
  4. CLOPIDOGREL [Suspect]
     Indication: LACUNAR INFARCTION
     Route: 048
     Dates: start: 20061016, end: 20070803
  5. ASPIRIN [Concomitant]
     Dosage: 100 MG
     Route: 048
     Dates: start: 20050323

REACTIONS (1)
  - EMBOLIC CEREBRAL INFARCTION [None]
